FAERS Safety Report 18775992 (Version 1)
Quarter: 2021Q1

REPORT INFORMATION
  Report Type: Other
  Country: US (occurrence: US)
  Receive Date: 20210122
  Receipt Date: 20210122
  Transmission Date: 20210419
  Serious: Yes (Other)
  Sender: FDA-Public Use
  Company Number: US-DEXPHARM-20201222

PATIENT
  Age: 68 Year
  Sex: Male

DRUGS (5)
  1. OXYCODONE [Suspect]
     Active Substance: OXYCODONE
  2. DICLOFENAC [Suspect]
     Active Substance: DICLOFENAC
  3. VALIUM [Suspect]
     Active Substance: DIAZEPAM
  4. CELEBREX [Concomitant]
     Active Substance: CELECOXIB
  5. MEDROL [Suspect]
     Active Substance: METHYLPREDNISOLONE

REACTIONS (2)
  - Feeling abnormal [Unknown]
  - Gait disturbance [Unknown]
